FAERS Safety Report 8202860-5 (Version None)
Quarter: 2012Q1

REPORT INFORMATION
  Report Type: 
  Country: None (occurrence: None)
  Receive Date: 20120312
  Receipt Date: 20120312
  Transmission Date: 20120608
  Serious: Yes (Hospitalization)
  Sender: FDA-Public Use
  Company Number: None

PATIENT
  Sex: Female
  Weight: 92.532 kg

DRUGS (5)
  1. RIZATRIPTAN [Concomitant]
  2. FERROUS SULFATE TAB [Concomitant]
  3. PROPRANOLOL [Concomitant]
  4. YASMIN [Suspect]
     Indication: CONTRACEPTION
     Dosage: 1 TABLET
     Route: 048
  5. NORTRIPTYLINE HCL [Concomitant]

REACTIONS (2)
  - DEEP VEIN THROMBOSIS [None]
  - PULMONARY EMBOLISM [None]
